FAERS Safety Report 5050646-5 (Version None)
Quarter: 2006Q3

REPORT INFORMATION
  Report Type: 
  Country: None (occurrence: None)
  Receive Date: 20060710
  Receipt Date: 20060624
  Transmission Date: 20061208
  Serious: Yes (Other)
  Sender: FDA-Public Use
  Company Number: GXKR2006DE01624

PATIENT
  Age: 42 Year
  Sex: Female
  Weight: 55 kg

DRUGS (1)
  1. CEFTRIAXONE [Suspect]
     Indication: NEUROBORRELIOSIS
     Dosage: 2 G, QD, INFUSION
     Dates: start: 20060203, end: 20060221

REACTIONS (22)
  - ACTIVATED PARTIAL THROMBOPLASTIN TIME PROLONGED [None]
  - ANXIETY DISORDER [None]
  - BACK PAIN [None]
  - BODY TEMPERATURE INCREASED [None]
  - COAGULOPATHY [None]
  - DIARRHOEA [None]
  - DYSGEUSIA [None]
  - EOSINOPHILIA [None]
  - FEELING HOT [None]
  - HYPERSENSITIVITY [None]
  - HYPOAESTHESIA ORAL [None]
  - JARISCH-HERXHEIMER REACTION [None]
  - LEUKOPENIA [None]
  - NAUSEA [None]
  - NEURALGIA [None]
  - PARAESTHESIA [None]
  - PETECHIAE [None]
  - PRURITUS [None]
  - RASH [None]
  - RESTLESSNESS [None]
  - SENSATION OF FOREIGN BODY [None]
  - VAGINAL CANDIDIASIS [None]
